FAERS Safety Report 8054173-2 (Version None)
Quarter: 2012Q1

REPORT INFORMATION
  Report Type: 
  Country: None (occurrence: None)
  Receive Date: 20120118
  Receipt Date: 20120111
  Transmission Date: 20120608
  Serious: Yes (Hospitalization, Other)
  Sender: FDA-Public Use
  Company Number: JP-PFIZER INC-2011308024

PATIENT
  Age: 81 Year
  Sex: Female
  Weight: 47.5 kg

DRUGS (3)
  1. RINGEREAZE [Suspect]
     Indication: HERPES ZOSTER
     Dosage: 60 MG, 3X/DAY
     Route: 048
     Dates: start: 20111212, end: 20111214
  2. LYRICA [Suspect]
     Indication: HERPES ZOSTER
     Dosage: 25 MG, 2X/DAY
     Route: 048
     Dates: start: 20111214, end: 20111214
  3. VALTREX [Suspect]
     Indication: HERPES ZOSTER
     Dosage: 1000 MG, 3X/DAY
     Route: 048
     Dates: start: 20111213, end: 20111217

REACTIONS (1)
  - RENAL FAILURE ACUTE [None]
